FAERS Safety Report 8104339-8 (Version None)
Quarter: 2012Q1

REPORT INFORMATION
  Report Type: 
  Country: None (occurrence: None)
  Receive Date: 20120130
  Receipt Date: 20120120
  Transmission Date: 20120608
  Serious: Yes (Death, Hospitalization)
  Sender: FDA-Public Use
  Company Number: US-MPIJNJ-2011-06302

PATIENT
  Sex: Male

DRUGS (12)
  1. VELCADE [Suspect]
     Dosage: 1.3 MG/M2, UNK
     Dates: start: 20101230, end: 20110629
  2. DEXAMETHASONE [Suspect]
     Indication: MULTIPLE MYELOMA
     Dosage: UNK
     Dates: start: 20110831, end: 20111031
  3. VELCADE [Suspect]
     Dosage: 1.3 MG/M2, UNK
     Dates: start: 20110629, end: 20110824
  4. CYCLOPHOSPHAMIDE [Suspect]
     Dosage: 250 MG/M2, UNK
     Dates: start: 20110629, end: 20110824
  5. VELCADE [Suspect]
     Dosage: 1.3 MG/M2, UNK
     Dates: start: 20100920, end: 20101227
  6. MELPHALAN HYDROCHLORIDE [Suspect]
     Indication: MULTIPLE MYELOMA
     Dosage: 5 MG/M2, CYCLIC
     Dates: start: 20100920, end: 20101227
  7. THALIDOMIDE [Suspect]
     Indication: MULTIPLE MYELOMA
     Dosage: 50 MG, CYCLIC
     Dates: start: 20100920, end: 20101227
  8. VELCADE [Suspect]
     Indication: MULTIPLE MYELOMA
     Dosage: 1.3 MG/M2, CYCLIC
     Dates: start: 20110831, end: 20111031
  9. CYCLOPHOSPHAMIDE [Suspect]
     Indication: MULTIPLE MYELOMA
     Dosage: 300 MG/M2, CYCLIC
     Route: 048
     Dates: start: 20110831, end: 20111031
  10. CYCLOPHOSPHAMIDE [Suspect]
     Dosage: 1.3 MG/M2, UNK
     Dates: start: 20101230, end: 20110629
  11. PREDNISONE TAB [Suspect]
     Indication: MULTIPLE MYELOMA
     Dosage: 60 MG/M2, CYCLIC
     Dates: start: 20100920, end: 20101227
  12. PROCRIT                            /00909301/ [Concomitant]
     Indication: PRODUCT USED FOR UNKNOWN INDICATION
     Dosage: UNK
     Dates: start: 20101011, end: 20111027

REACTIONS (2)
  - CELLULITIS [None]
  - DEATH [None]
